FAERS Safety Report 7714608-9 (Version None)
Quarter: 2011Q3

REPORT INFORMATION
  Report Type: 
  Country: None (occurrence: None)
  Receive Date: 20110829
  Receipt Date: 20110824
  Transmission Date: 20111222
  Serious: No
  Sender: FDA-Public Use
  Company Number: US-PFIZER INC-2011197346

PATIENT
  Sex: Female
  Weight: 103 kg

DRUGS (2)
  1. PRISTIQ [Suspect]
     Indication: DEPRESSION
     Dosage: 50 MG, 1X/DAY
     Dates: start: 20110101
  2. ABILIFY [Concomitant]
     Indication: ANXIETY
     Dosage: UNK

REACTIONS (1)
  - HYPERHIDROSIS [None]
